FAERS Safety Report 10716993 (Version 7)
Quarter: 2017Q1

REPORT INFORMATION
  Report Type: Spontaneous
  Country: US (occurrence: US)
  Receive Date: 20150116
  Receipt Date: 20170203
  Transmission Date: 20170428
  Serious: Yes (Hospitalization, Other)
  Sender: FDA-Public Use
  Company Number: US-PFIZER INC-2015013898

PATIENT
  Age: 35 Year
  Sex: Female

DRUGS (32)
  1. VENTOLIN [Concomitant]
     Active Substance: ALBUTEROL SULFATE
     Indication: ASTHMA
  2. SALSALATE. [Concomitant]
     Active Substance: SALSALATE
     Indication: OSTEOARTHRITIS
     Dosage: 750 MG, 2X/DAY
     Dates: start: 2005
  3. METHOTREXATE. [Concomitant]
     Active Substance: METHOTREXATE
     Indication: OSTEOARTHRITIS
     Dosage: 12.5 MG, WEEKLY
     Dates: start: 2005
  4. PULMICORT FLEXHALER [Concomitant]
     Active Substance: BUDESONIDE
     Indication: HYPERSENSITIVITY
     Dosage: 180 MG, 2X/DAY
  5. LYRICA [Suspect]
     Active Substance: PREGABALIN
     Indication: SPINAL OSTEOARTHRITIS
     Dosage: 75 MG, 2X/DAY
     Route: 048
     Dates: start: 20120202
  6. ACETAMINOPHEN ER [Concomitant]
     Active Substance: ACETAMINOPHEN
     Indication: PAIN
     Dosage: 650 MG THREE DAILY
     Dates: start: 2005
  7. PULMICORT FLEXHALER [Concomitant]
     Active Substance: BUDESONIDE
     Indication: ASTHMA
  8. FISH OIL [Concomitant]
     Active Substance: FISH OIL
     Indication: ADRENAL INSUFFICIENCY
     Dosage: STRENGTH 4000 MG
  9. PLAQUENIL [Concomitant]
     Active Substance: HYDROXYCHLOROQUINE SULFATE
     Indication: OSTEOARTHRITIS
     Dosage: 200 MG, 2X/DAY
     Dates: start: 2005
  10. WELLBUTRIN [Concomitant]
     Active Substance: BUPROPION HYDROCHLORIDE
     Indication: PAIN
     Dosage: 300 MG, 2X/DAY
     Dates: start: 2014
  11. DYAZIDE [Concomitant]
     Active Substance: HYDROCHLOROTHIAZIDE\TRIAMTERENE
     Indication: FLUID RETENTION
     Dosage: HYDROCHLOROTHIAZIDE 25MG, TRIAMTERENE 37.5 MG, AS NEEDED
     Dates: start: 2012
  12. SKELAXIN [Concomitant]
     Active Substance: METAXALONE
     Dosage: 800 MG, 3X/DAY
  13. PERCOCET (10-325) [Concomitant]
     Indication: PAIN
     Dosage: UNK UNK, AS NEEDED
     Dates: start: 2012
  14. CALCIUM 1200 MG [Concomitant]
     Indication: CALCIUM DEFICIENCY
     Dosage: 630 MG, 2X/DAY
     Dates: start: 2014
  15. PROBIOTIC [Concomitant]
     Active Substance: PROBIOTICS NOS
     Indication: ADRENAL INSUFFICIENCY
     Dosage: UNK
  16. LYRICA [Suspect]
     Active Substance: PREGABALIN
     Indication: PAIN
     Dosage: 75 MG, 3X/DAY
     Route: 048
  17. SKELAXIN [Concomitant]
     Active Substance: METAXALONE
     Indication: PAIN
     Dosage: 800 MG THREE DAILY
     Dates: start: 2011
  18. NEURONTIN [Concomitant]
     Active Substance: GABAPENTIN
     Indication: PAIN
     Dosage: 300 MG, 3X/DAY
     Dates: start: 2014
  19. FOLIC ACID. [Concomitant]
     Active Substance: FOLIC ACID
     Indication: RESTLESS LEGS SYNDROME
     Dosage: 1 MG, 1X/DAY
     Dates: start: 2007
  20. DULERA [Concomitant]
     Active Substance: FORMOTEROL FUMARATE DIHYDRATE\MOMETASONE FUROATE
     Indication: HYPERSENSITIVITY
     Dosage: 200MCG/5MCG TWICE DAILY
     Dates: start: 2014
  21. MIRAPEX [Concomitant]
     Active Substance: PRAMIPEXOLE DIHYDROCHLORIDE
     Indication: RESTLESS LEGS SYNDROME
     Dosage: 0.125 MG, 1X/DAY
     Dates: start: 2007
  22. DULERA [Concomitant]
     Active Substance: FORMOTEROL FUMARATE DIHYDRATE\MOMETASONE FUROATE
     Indication: ASTHMA
  23. XYZAL [Concomitant]
     Active Substance: LEVOCETIRIZINE DIHYDROCHLORIDE
     Indication: ASTHMA
     Dosage: 5 MG, 1X/DAY
     Dates: start: 2012
  24. ALBUTEROL SULFATE AND IPRATROPIUM BROMIDE [Concomitant]
     Active Substance: ALBUTEROL SULFATE\IPRATROPIUM BROMIDE
     Indication: ASTHMA
     Dosage: IPRATROPIUM BROMIDE 0.5 MG AND ALBUTEROL SULPHATE 3MG, 4 TIMES DAILY AS NEEDED
     Dates: start: 2010
  25. TOVIAZ [Concomitant]
     Active Substance: FESOTERODINE FUMARATE
     Indication: MICTURITION URGENCY
     Dosage: 8 MG, 1X/DAY
     Dates: start: 2012
  26. LYRICA [Suspect]
     Active Substance: PREGABALIN
     Indication: LUMBAR RADICULOPATHY
     Dosage: 150 MG, 2X/DAY (2 CAPSULES OF 75 MG TWICE A DAY)
     Route: 048
  27. TRAMADOL HYDROCHLORIDE. [Concomitant]
     Active Substance: TRAMADOL HYDROCHLORIDE
     Indication: PAIN
     Dosage: 300 MG BEDTIME
     Dates: start: 2011
  28. ABILIFY [Concomitant]
     Active Substance: ARIPIPRAZOLE
     Indication: PAIN
     Dosage: 5 MG ONCE DAILY
     Dates: start: 2014
  29. SINGULAIR [Concomitant]
     Active Substance: MONTELUKAST SODIUM
     Indication: HYPERSENSITIVITY
     Dosage: 10 MG, 1X/DAY
     Dates: start: 2005
  30. VENTOLIN [Concomitant]
     Active Substance: ALBUTEROL SULFATE
     Indication: HYPERSENSITIVITY
     Dosage: 90 MG, AS NEEDED
     Dates: start: 2014
  31. POTASSIUM [Concomitant]
     Active Substance: POTASSIUM
     Indication: BLOOD POTASSIUM DECREASED
     Dosage: 20 MG, 2X/DAY
     Dates: start: 2014
  32. PREGNENOLONE [Concomitant]
     Active Substance: PREGNENOLONE
     Indication: ADRENAL INSUFFICIENCY
     Dosage: 50 MG, 1X/DAY

REACTIONS (6)
  - Asthma [Not Recovered/Not Resolved]
  - Activities of daily living impaired [Not Recovered/Not Resolved]
  - Immune system disorder [Not Recovered/Not Resolved]
  - Rheumatoid arthritis [Not Recovered/Not Resolved]
  - Bronchitis [Not Recovered/Not Resolved]
  - Malaise [Not Recovered/Not Resolved]

NARRATIVE: CASE EVENT DATE: 1985
